FAERS Safety Report 4345000-5 (Version None)
Quarter: 2004Q2

REPORT INFORMATION
  Report Type: 
  Country: None (occurrence: None)
  Receive Date: 20040421
  Receipt Date: 20040421
  Transmission Date: 20050107
  Serious: Yes (Hospitalization)
  Sender: FDA-Public Use
  Company Number: None

PATIENT
  Sex: Male

DRUGS (1)
  1. HEPARIN LOCK FLUSH [Suspect]

REACTIONS (2)
  - CENTRAL LINE INFECTION [None]
  - SEPSIS [None]
